FAERS Safety Report 8486918-1 (Version None)
Quarter: 2012Q3

REPORT INFORMATION
  Report Type: 
  Country: None (occurrence: None)
  Receive Date: 20120704
  Receipt Date: 20120622
  Transmission Date: 20120928
  Serious: Yes (Death)
  Sender: FDA-Public Use
  Company Number: JP-BRISTOL-MYERS SQUIBB COMPANY-16665952

PATIENT
  Age: 42 Year
  Sex: Female
  Weight: 84 kg

DRUGS (8)
  1. LEVOTOMIN [Concomitant]
     Dosage: TABS
     Dates: start: 20040615, end: 20110515
  2. PANTOSIN [Concomitant]
     Dosage: TABS
     Dates: start: 20090713, end: 20110515
  3. TASMOLIN [Concomitant]
     Dosage: TABS
     Dates: start: 20041210, end: 20110515
  4. MAGNESIUM OXIDE [Concomitant]
     Dosage: TABS
     Dates: start: 20050708, end: 20110515
  5. ABILIFY [Suspect]
     Indication: SCHIZOPHRENIA
     Route: 048
     Dates: start: 20110508, end: 20110515
  6. RISPERDAL [Concomitant]
     Dosage: TABS
     Dates: start: 20090128, end: 20110515
  7. DEPAS [Concomitant]
     Dosage: TABS
     Dates: start: 20090102, end: 20110515
  8. ROHYPNOL [Concomitant]
     Dosage: TABS
     Dates: start: 20040628, end: 20110515

REACTIONS (2)
  - COMPLETED SUICIDE [None]
  - INTENTIONAL OVERDOSE [None]
